FAERS Safety Report 4356979-X (Version None)
Quarter: 2004Q2

REPORT INFORMATION
  Report Type: 
  Country: None (occurrence: None)
  Receive Date: 20040507
  Receipt Date: 20040419
  Transmission Date: 20050107
  Serious: Yes (Other)
  Sender: FDA-Public Use
  Company Number: USA040465325

PATIENT
  Age: 12 Year
  Sex: Male

DRUGS (1)
  1. STRATTERA [Suspect]
     Indication: PSYCHOMOTOR HYPERACTIVITY
     Dosage: 60 MG DAY

REACTIONS (7)
  - CONVULSION [None]
  - EYE ROLLING [None]
  - FAECAL INCONTINENCE [None]
  - INSOMNIA [None]
  - INTENTIONAL SELF-INJURY [None]
  - MEDICATION ERROR [None]
  - URINARY INCONTINENCE [None]
